FAERS Safety Report 12991957 (Version 3)
Quarter: 2017Q1

REPORT INFORMATION
  Report Type: Report from Study
  Country: US (occurrence: US)
  Receive Date: 20161201
  Receipt Date: 20170208
  Transmission Date: 20170428
  Serious: Yes (Hospitalization, Other)
  Sender: FDA-Public Use
  Company Number: US-SAOL THERAPEUTICS-2016SAO01151

PATIENT
  Age: 22 Year
  Sex: Female

DRUGS (2)
  1. LIORESAL [Suspect]
     Active Substance: BACLOFEN
     Dosage: 500 ?G, \DAY
     Route: 037
  2. LIORESAL [Suspect]
     Active Substance: BACLOFEN
     Dosage: 420 ?G, \DAY
     Route: 037
     Dates: start: 20151012

REACTIONS (6)
  - Muscle spasticity [Recovered/Resolved]
  - Dyskinesia [Recovered/Resolved]
  - Hypertonia [Recovered/Resolved]
  - Device failure [Unknown]
  - Fall [Unknown]
  - Device damage [Recovered/Resolved]

NARRATIVE: CASE EVENT DATE: 201603
